FAERS Safety Report 7133341-8 (Version None)
Quarter: 2010Q4

REPORT INFORMATION
  Report Type: 
  Country: None (occurrence: None)
  Receive Date: 20101202
  Receipt Date: 20101119
  Transmission Date: 20110411
  Serious: Yes (Hospitalization)
  Sender: FDA-Public Use
  Company Number: US-WATSON-2010-15218

PATIENT
  Age: 32 Year
  Sex: Female

DRUGS (2)
  1. IBUPROFEN TABLETS [Suspect]
     Indication: AFTERBIRTH PAIN
     Dosage: 800 MG, Q8H
     Route: 048
  2. LIDOCAINE 1% W/ EPINEPHRINE 1:200,000 [Suspect]
     Indication: LOCAL ANAESTHESIA
     Dosage: 45 MG LIDOCAINE, 15 MICROGRAM EPINEPHRINE
     Route: 008

REACTIONS (1)
  - EXTRADURAL HAEMATOMA [None]
